FAERS Safety Report 19028492 (Version 5)
Quarter: 2022Q3

REPORT INFORMATION
  Report Type: Report from Study
  Country: FR (occurrence: FR)
  Receive Date: 20210318
  Receipt Date: 20220805
  Transmission Date: 20221027
  Serious: Yes (Hospitalization)
  Sender: FDA-Public Use
  Company Number: FR-JNJFOC-20210313686

PATIENT
  Age: 34 Year
  Sex: Female

DRUGS (7)
  1. SPRAVATO [Suspect]
     Active Substance: ESKETAMINE
     Indication: Depression
     Dosage: 56 MG, 5 TOTAL DOSES
     Dates: start: 20201229, end: 20210226
  2. SPRAVATO [Suspect]
     Active Substance: ESKETAMINE
     Dosage: 84 MG, 16 TOTAL DOSES
     Dates: start: 20210301, end: 20210903
  3. PAROXETINE [Concomitant]
     Active Substance: PAROXETINE
     Indication: Depression
     Route: 048
     Dates: start: 20210302
  4. TRIMEPRAZINE [Concomitant]
     Active Substance: TRIMEPRAZINE
     Dates: start: 20201210
  5. LORMETAZEPAM [Concomitant]
     Active Substance: LORMETAZEPAM
     Dates: start: 20201210
  6. TRANXENE [Concomitant]
     Active Substance: CLORAZEPATE DIPOTASSIUM
     Dates: start: 20210301
  7. LORAZEPAM [Concomitant]
     Active Substance: LORAZEPAM
     Dates: start: 20210301

REACTIONS (2)
  - Suicidal behaviour [Recovered/Resolved]
  - Drug ineffective [Recovered/Resolved]

NARRATIVE: CASE EVENT DATE: 20210301
